FAERS Safety Report 4840786-5 (Version None)
Quarter: 2005Q4

REPORT INFORMATION
  Report Type: 
  Country: None (occurrence: None)
  Receive Date: 20051130
  Receipt Date: 20041015
  Transmission Date: 20060501
  Serious: No
  Sender: FDA-Public Use
  Company Number: US-BRISTOL-MYERS SQUIBB COMPANY-12734463

PATIENT
  Age: 75 Year
  Sex: Male
  Weight: 73 kg

DRUGS (5)
  1. AVALIDE [Suspect]
     Indication: HYPERTENSION
     Dosage: THERAPY DATE: 1 YEAR VS A COUPLE OF YEARS
     Route: 048
     Dates: end: 20041014
  2. AMIODARONE [Concomitant]
  3. COUMADIN [Concomitant]
  4. DOXAZOSIN [Concomitant]
  5. ATENOLOL [Concomitant]

REACTIONS (2)
  - BLOOD TEST ABNORMAL [None]
  - RENAL DISORDER [None]
